FAERS Safety Report 22601170 (Version 1)
Quarter: 2023Q2

REPORT INFORMATION
  Report Type: Report from Study
  Country: US (occurrence: US)
  Receive Date: 20230614
  Receipt Date: 20230614
  Transmission Date: 20230722
  Serious: No
  Sender: FDA-Public Use
  Company Number: US-DECIPHERA PHARMACEUTICALS LLC-2023US000526

PATIENT
  Sex: Male

DRUGS (2)
  1. QINLOCK [Suspect]
     Active Substance: RIPRETINIB
     Indication: Product used for unknown indication
     Dosage: 150 MILLIGRAM, BID, 3 IN MORNINGA DN 3 AT NIGHT BUT SWITCHED TO 1 AT NIGHT AND NOW 2
     Route: 048
  2. QINLOCK [Suspect]
     Active Substance: RIPRETINIB
     Dosage: 150 MILLIGRAM, (1 AT NIGHT AND NOW 2)
     Route: 048

REACTIONS (2)
  - Adverse event [Unknown]
  - Inappropriate schedule of product administration [Unknown]
